FAERS Safety Report 9585280 (Version 1)
Quarter: 2013Q4

REPORT INFORMATION
  Report Type: Spontaneous
  Country: US (occurrence: US)
  Receive Date: 20131002
  Receipt Date: 20131002
  Transmission Date: 20140711
  Serious: No
  Sender: FDA-Public Use
  Company Number: US-AMGEN-USASP2013062941

PATIENT
  Age: 43 Year
  Sex: Female
  Weight: 57.14 kg

DRUGS (5)
  1. ENBREL [Suspect]
     Indication: PRODUCT USED FOR UNKNOWN INDICATION
     Dosage: 50 MG, QWK
     Route: 058
  2. XANAX [Concomitant]
     Dosage: 2 MG, UNK
  3. PRILOSEC                           /00661201/ [Concomitant]
     Dosage: 20 MG, UNK
  4. TOPAMAX [Concomitant]
     Dosage: 200 MG, UNK
  5. DEPO-PROVERA [Concomitant]
     Dosage: 400 ML, UNK

REACTIONS (2)
  - Rash erythematous [Unknown]
  - Injection site erythema [Unknown]
